FAERS Safety Report 4622973-4 (Version None)
Quarter: 2005Q1

REPORT INFORMATION
  Report Type: 
  Country: None (occurrence: None)
  Receive Date: 20050329
  Receipt Date: 19971011
  Transmission Date: 20050727
  Serious: No
  Sender: FDA-Public Use
  Company Number: 6352

PATIENT
  Age: 25 Year
  Sex: Female

DRUGS (9)
  1. VINBLASTINE SULFATE [Suspect]
     Indication: HODGKIN'S DISEASE
     Route: 042
     Dates: start: 19970906
  2. DOXORUBICIN HCL [Suspect]
     Indication: HODGKIN'S DISEASE
     Route: 042
     Dates: start: 19970906
  3. DACARBAZINE [Suspect]
     Indication: HODGKIN'S DISEASE
     Route: 042
     Dates: start: 19970906
  4. BLEOMYCIN [Suspect]
     Indication: HODGKIN'S DISEASE
     Route: 042
     Dates: start: 19970906
  5. CEFTAZIDIME [Concomitant]
  6. TEICOPLANIN [Concomitant]
  7. AMPHOTERICIN B [Concomitant]
  8. TAZOBACTAM/PIPERACILLIN [Concomitant]
  9. GENTAMICIN [Concomitant]

REACTIONS (2)
  - BRADYCARDIA [None]
  - HYPOTHERMIA [None]
